FAERS Safety Report 6935625-2 (Version None)
Quarter: 2010Q3

REPORT INFORMATION
  Report Type: 
  Country: None (occurrence: None)
  Receive Date: 20100823
  Receipt Date: 20100412
  Transmission Date: 20110219
  Serious: Yes (Other)
  Sender: FDA-Public Use
  Company Number: US-ASTRAZENECA-2009UW14516

PATIENT
  Sex: Male

DRUGS (7)
  1. SEROQUEL [Suspect]
     Route: 048
     Dates: start: 20060213
  2. LOVASTATIN [Concomitant]
     Dosage: 20-25 MG
     Route: 048
     Dates: start: 20060106
  3. BUPROPION HCL [Concomitant]
     Route: 048
     Dates: start: 20060130
  4. BUPROPION HCL [Concomitant]
     Route: 048
     Dates: start: 20060130
  5. TRAZODONE HCL [Concomitant]
     Route: 048
     Dates: start: 20060130
  6. TRAZODONE HCL [Concomitant]
     Route: 048
     Dates: start: 20060130
  7. LISINOPRIL [Concomitant]
     Route: 048
     Dates: start: 20060106

REACTIONS (2)
  - NEUROPATHY PERIPHERAL [None]
  - TYPE 2 DIABETES MELLITUS [None]
